FAERS Safety Report 16740016 (Version 1)
Quarter: 2019Q3

REPORT INFORMATION
  Report Type: Spontaneous
  Country: DE (occurrence: DE)
  Receive Date: 20190826
  Receipt Date: 20190826
  Transmission Date: 20191005
  Serious: Yes (Other)
  Sender: FDA-Public Use
  Company Number: DE-CHEPLA-C20191859

PATIENT
  Sex: Female

DRUGS (3)
  1. PARACETAMOL [Suspect]
     Active Substance: ACETAMINOPHEN
     Indication: HEADACHE
     Dosage: 200-400 MG/D
     Route: 065
  2. ACETYLSALICYLIC ACID [Suspect]
     Active Substance: ASPIRIN
     Dosage: UNKNOWN
     Route: 065
  3. ORLISTAT. [Suspect]
     Active Substance: ORLISTAT
     Dosage: UNKNOWN
     Route: 065

REACTIONS (4)
  - Oligohydramnios [Recovered/Resolved]
  - Labour induction [Recovered/Resolved]
  - Exposure during pregnancy [Recovered/Resolved]
  - Placental insufficiency [Recovered/Resolved]
